FAERS Safety Report 14291173 (Version 2)
Quarter: 2018Q1

REPORT INFORMATION
  Report Type: Spontaneous
  Country: US (occurrence: US)
  Receive Date: 20171215
  Receipt Date: 20180130
  Transmission Date: 20180509
  Serious: Yes (Other)
  Sender: FDA-Public Use
  Company Number: US-IMPAX LABORATORIES, INC-2017-IPXL-03371

PATIENT
  Age: 75 Year
  Sex: Female
  Weight: 73 kg

DRUGS (2)
  1. RYTARY [Suspect]
     Active Substance: CARBIDOPA\LEVODOPA
     Indication: PARKINSON^S DISEASE
     Dosage: 61.25/245 MG, 2 CAPSULE, QID
     Route: 065
     Dates: start: 20170804, end: 201708
  2. RYTARY [Suspect]
     Active Substance: CARBIDOPA\LEVODOPA
     Dosage: 61.25/245 MG, 2 CAPSULE, THREE TIMES A DAY
     Route: 048
     Dates: start: 201708, end: 20170822

REACTIONS (11)
  - Confusional state [Unknown]
  - Logorrhoea [Unknown]
  - Psychomotor hyperactivity [Unknown]
  - Nausea [Unknown]
  - Abnormal behaviour [Recovered/Resolved]
  - Dry mouth [Unknown]
  - Insomnia [Unknown]
  - Emotional disorder [Unknown]
  - Amnesia [Unknown]
  - Dementia [Recovered/Resolved]
  - Dyskinesia [Unknown]

NARRATIVE: CASE EVENT DATE: 20170805
